FAERS Safety Report 20461460 (Version 3)
Quarter: 2022Q2

REPORT INFORMATION
  Report Type: Spontaneous
  Country: US (occurrence: US)
  Receive Date: 20220211
  Receipt Date: 20220523
  Transmission Date: 20220720
  Serious: Yes (Other)
  Sender: FDA-Public Use
  Company Number: US-PFIZER INC-202200185432

PATIENT
  Age: 58 Year
  Sex: Female

DRUGS (2)
  1. IBRANCE [Suspect]
     Active Substance: PALBOCICLIB
     Indication: Breast cancer female
     Dosage: 125 MG
     Dates: start: 20211217
  2. IBRANCE [Suspect]
     Active Substance: PALBOCICLIB
     Dosage: 100 MG
     Dates: start: 20220202

REACTIONS (6)
  - Hand fracture [Unknown]
  - Stent placement [Unknown]
  - White blood cell count decreased [Unknown]
  - Fatigue [Unknown]
  - Nausea [Unknown]
  - Abdominal discomfort [Unknown]
